FAERS Safety Report 9171673 (Version 1)
Quarter: 2013Q1

REPORT INFORMATION
  Report Type: Spontaneous
  Country: GB (occurrence: None)
  Receive Date: 20130313
  Receipt Date: 20130313
  Transmission Date: 20140127
  Serious: Yes (Other)
  Sender: FDA-Public Use
  Company Number: 2013RR-65717

PATIENT
  Age: 43 Year
  Sex: Female

DRUGS (4)
  1. GABAPENTIN [Suspect]
     Indication: PARASOMNIA
  2. CLONAZEPAM [Suspect]
     Indication: PARASOMNIA
  3. PAROXETINE [Suspect]
     Indication: PARASOMNIA
  4. TRAZODONE [Suspect]
     Indication: PARASOMNIA

REACTIONS (7)
  - Depression [None]
  - Weight increased [None]
  - Sedation [None]
  - Parasomnia [None]
  - Condition aggravated [None]
  - Drug intolerance [None]
  - Therapeutic product ineffective [None]
